FAERS Safety Report 5562401-8 (Version None)
Quarter: 2007Q4

REPORT INFORMATION
  Report Type: 
  Country: None (occurrence: None)
  Receive Date: 20071215
  Receipt Date: 20070515
  Transmission Date: 20080405
  Serious: No
  Sender: FDA-Public Use
  Company Number: US-AMGEN-US224858

PATIENT
  Age: 57 Year
  Sex: Female

DRUGS (15)
  1. ARANESP [Suspect]
     Indication: RENAL FAILURE CHRONIC
     Route: 065
     Dates: start: 20051101
  2. ALLEGRA [Concomitant]
  3. PROGRAF [Concomitant]
  4. CELLCEPT [Concomitant]
  5. FUROSEMIDE [Concomitant]
  6. ALLOPURINOL [Concomitant]
  7. PRANDIN [Concomitant]
  8. DETROL [Concomitant]
  9. POTASSIUM CHLORIDE [Concomitant]
  10. DIOVAN [Concomitant]
  11. NOVALOG INSULIN [Concomitant]
  12. LANTUS [Concomitant]
  13. NEXIUM [Concomitant]
  14. BACTRIM [Concomitant]
  15. METOLAZONE [Concomitant]
     Dates: start: 20051101

REACTIONS (1)
  - DIABETES MELLITUS INADEQUATE CONTROL [None]
